FAERS Safety Report 6787680-0 (Version None)
Quarter: 2010Q2

REPORT INFORMATION
  Report Type: 
  Country: None (occurrence: None)
  Receive Date: 20100623
  Receipt Date: 20070808
  Transmission Date: 20101027
  Serious: Yes (Other)
  Sender: FDA-Public Use
  Company Number: US-PFIZER INC-2007067286

PATIENT
  Age: 33 Year
  Sex: Female

DRUGS (2)
  1. VIRACEPT [Suspect]
     Route: 048
     Dates: start: 20070501, end: 20070717
  2. COMBIVIR [Suspect]
     Dosage: 2 TABLETS
     Route: 048
     Dates: start: 20070501, end: 20070717

REACTIONS (1)
  - HEPATIC ENZYME INCREASED [None]
